FAERS Safety Report 8997846 (Version 2)
Quarter: 2013Q1

REPORT INFORMATION
  Report Type: Report from Study
  Country: HU (occurrence: HU)
  Receive Date: 20130104
  Receipt Date: 20130325
  Transmission Date: 20140127
  Serious: Yes (Hospitalization)
  Sender: FDA-Public Use
  Company Number: HU-GLAXOSMITHKLINE-B0856513A

PATIENT
  Sex: Female

DRUGS (6)
  1. TYVERB [Suspect]
     Indication: BREAST CANCER
     Dosage: 250MG UNKNOWN
     Route: 065
     Dates: start: 201210
  2. XELODA [Suspect]
     Indication: BREAST CANCER
     Dosage: 500MG UNKNOWN
     Route: 065
     Dates: start: 201210
  3. ALUSULIN [Concomitant]
     Indication: PEPTIC ULCER
     Dosage: 1G UNKNOWN
     Route: 065
     Dates: start: 2012
  4. QUAMATEL [Concomitant]
     Indication: PEPTIC ULCER
     Dosage: 20MG PER DAY
     Route: 065
     Dates: start: 2012
  5. NOLPAZA [Concomitant]
     Indication: PEPTIC ULCER
     Dosage: 20MG UNKNOWN
     Route: 065
  6. THEOSPIREX [Concomitant]
     Indication: CHRONIC OBSTRUCTIVE PULMONARY DISEASE
     Dosage: 150MG PER DAY
     Route: 065
     Dates: start: 2012

REACTIONS (5)
  - Abdominal pain upper [Not Recovered/Not Resolved]
  - Peptic ulcer [Not Recovered/Not Resolved]
  - Decreased appetite [Not Recovered/Not Resolved]
  - Vomiting [Not Recovered/Not Resolved]
  - Weight decreased [Not Recovered/Not Resolved]
